FAERS Safety Report 23674692 (Version 2)
Quarter: 2025Q2

REPORT INFORMATION
  Report Type: Other
  Country: US (occurrence: US)
  Receive Date: 20240326
  Receipt Date: 20250407
  Transmission Date: 20250717
  Serious: No
  Sender: TRAVERE THERAPEUTICS
  Company Number: US-TRAVERE-2024TVT00279

PATIENT
  Age: 51 Year
  Sex: Female

DRUGS (2)
  1. FILSPARI [Suspect]
     Active Substance: SPARSENTAN
     Indication: IgA nephropathy
     Dosage: LOT NUMBER: 1976070, EXPIRY DATE: 31-AUG-2025
     Route: 048
     Dates: start: 202402
  2. FILSPARI [Suspect]
     Active Substance: SPARSENTAN
     Indication: Haematuria

REACTIONS (2)
  - Blood triglycerides increased [None]
  - Fatigue [Unknown]

NARRATIVE: CASE EVENT DATE: 20240901
